FAERS Safety Report 5934888-X (Version None)
Quarter: 2008Q4

REPORT INFORMATION
  Report Type: 
  Country: None (occurrence: None)
  Receive Date: 20081027
  Receipt Date: 20081020
  Transmission Date: 20090506
  Serious: Yes (Hospitalization)
  Sender: FDA-Public Use
  Company Number: 2008BI026258

PATIENT
  Age: 50 Year
  Sex: Female

DRUGS (3)
  1. AVONEX [Suspect]
     Indication: MULTIPLE SCLEROSIS
     Dosage: 30 UG; QW; IM
     Route: 030
     Dates: start: 20070320
  2. . [Concomitant]
  3. . [Concomitant]

REACTIONS (5)
  - DYSPHAGIA [None]
  - LARYNGEAL OEDEMA [None]
  - POST PROCEDURAL COMPLICATION [None]
  - THROAT IRRITATION [None]
  - TOXIC NODULAR GOITRE [None]
